FAERS Safety Report 19134946 (Version 8)
Quarter: 2025Q1

REPORT INFORMATION
  Report Type: Spontaneous
  Country: US (occurrence: US)
  Receive Date: 20210414
  Receipt Date: 20250102
  Transmission Date: 20250409
  Serious: No
  Sender: PFIZER
  Company Number: US-PFIZER INC-2021302678

PATIENT
  Age: 67 Year
  Sex: Male

DRUGS (6)
  1. XELJANZ [Suspect]
     Active Substance: TOFACITINIB CITRATE
  2. AMLODIPINE [Concomitant]
     Active Substance: AMLODIPINE BESYLATE
  3. ATORVASTATIN [Concomitant]
     Active Substance: ATORVASTATIN
  4. ALPRAZOLAM [Concomitant]
     Active Substance: ALPRAZOLAM
  5. EZETIMIBE [Concomitant]
     Active Substance: EZETIMIBE
  6. ADVAIR HFA [Concomitant]
     Active Substance: FLUTICASONE PROPIONATE\SALMETEROL XINAFOATE

REACTIONS (15)
  - Therapeutic product effect incomplete [Unknown]
  - Inflammation [Unknown]
  - Disturbance in attention [Unknown]
  - Hypoacusis [Unknown]
  - Pain [Unknown]
  - Memory impairment [Unknown]
  - Gout [Unknown]
  - Onychomycosis [Unknown]
  - Headache [Unknown]
  - Photophobia [Unknown]
  - Nausea [Unknown]
  - Illness [Unknown]
  - Blood cholesterol abnormal [Unknown]
  - Cardiac disorder [Unknown]
  - Product container seal issue [Unknown]

NARRATIVE: CASE EVENT DATE: 20210316
